FAERS Safety Report 11905924 (Version 1)
Quarter: 2016Q1

REPORT INFORMATION
  Report Type: Spontaneous
  Country: US (occurrence: None)
  Receive Date: 20160108
  Receipt Date: 20160108
  Transmission Date: 20160526
  Serious: No
  Sender: FDA-Public Use
  Company Number: None

PATIENT
  Age: 62 Year
  Sex: Female
  Weight: 60 kg

DRUGS (6)
  1. MEROPENEM. [Suspect]
     Active Substance: MEROPENEM
     Indication: PNEUMONIA
     Route: 042
  2. MVI [Concomitant]
     Active Substance: VITAMINS
  3. VANCO [Concomitant]
     Active Substance: VANCOMYCIN
  4. ACYCLOVIR. [Concomitant]
     Active Substance: ACYCLOVIR
  5. POSACONAZOLE [Suspect]
     Active Substance: POSACONAZOLE
     Route: 042
  6. DAPSONE. [Concomitant]
     Active Substance: DAPSONE

REACTIONS (3)
  - Product deposit [None]
  - Wrong technique in product usage process [None]
  - Device occlusion [None]

NARRATIVE: CASE EVENT DATE: 20151225
